FAERS Safety Report 9491896 (Version 1)
Quarter: 2013Q3

REPORT INFORMATION
  Report Type: Spontaneous
  Country: GB (occurrence: GB)
  Receive Date: 20130830
  Receipt Date: 20130830
  Transmission Date: 20140515
  Serious: Yes (Other)
  Sender: FDA-Public Use
  Company Number: GB-009507513-1308GBR010550

PATIENT
  Age: 38 Year
  Sex: Male

DRUGS (3)
  1. INTERFERON ALFA-2B [Suspect]
     Indication: HEPATITIS C
     Dosage: 1 DF, QW
     Dates: start: 20121024
  2. RIBAVIRIN [Suspect]
     Indication: HEPATITIS C
     Dosage: 2 IN 1 DAY
     Route: 048
     Dates: start: 20121024
  3. TELAPREVIR [Suspect]
     Indication: HEPATITIS C
     Dosage: 3 IN 1 DAY
     Route: 048
     Dates: start: 20121024

REACTIONS (7)
  - Rectal haemorrhage [Not Recovered/Not Resolved]
  - Haemorrhoids [Not Recovered/Not Resolved]
  - Depression [Not Recovered/Not Resolved]
  - Intestinal mass [Not Recovered/Not Resolved]
  - Mood swings [Not Recovered/Not Resolved]
  - Proctalgia [Not Recovered/Not Resolved]
  - Insomnia [Not Recovered/Not Resolved]
